FAERS Safety Report 12581217 (Version 1)
Quarter: 2016Q3

REPORT INFORMATION
  Report Type: Spontaneous
  Country: US (occurrence: US)
  Receive Date: 20160721
  Receipt Date: 20160721
  Transmission Date: 20161109
  Serious: Yes (Other)
  Sender: FDA-Public Use
  Company Number: US-ETHYPHARM USA CORP-EY-BP-US-2016-033

PATIENT
  Age: 20 Year
  Sex: 0
  Weight: 62.2 kg

DRUGS (1)
  1. SUBUTEX [Suspect]
     Active Substance: BUPRENORPHINE HYDROCHLORIDE
     Indication: SUBSTANCE USE
     Dosage: 0.5 TO 1.5 MG

REACTIONS (7)
  - Somnolence [Unknown]
  - Intentional product misuse [Unknown]
  - Intentional product use issue [Unknown]
  - Drug abuse [Unknown]
  - Suicidal ideation [Unknown]
  - Depression [Unknown]
  - Euphoric mood [Unknown]
